FAERS Safety Report 16846861 (Version 1)
Quarter: 2019Q3

REPORT INFORMATION
  Report Type: Spontaneous
  Country: FI (occurrence: FI)
  Receive Date: 20190924
  Receipt Date: 20190924
  Transmission Date: 20191005
  Serious: Yes (Other)
  Sender: FDA-Public Use
  Company Number: FI-SA-2019SA260605

PATIENT

DRUGS (2)
  1. KLEXANE [Suspect]
     Active Substance: ENOXAPARIN
     Indication: DEEP VEIN THROMBOSIS
     Dosage: UNK
     Route: 065
  2. WARFARIN SODIUM. [Suspect]
     Active Substance: WARFARIN SODIUM
     Indication: DEEP VEIN THROMBOSIS
     Dosage: UNK
     Route: 065

REACTIONS (9)
  - Muscle spasms [Unknown]
  - Syncope [Unknown]
  - Myalgia [Unknown]
  - Paraesthesia [Unknown]
  - Malaise [Unknown]
  - Night sweats [Unknown]
  - Extrasystoles [Unknown]
  - Asthenia [Unknown]
  - Dyspnoea [Unknown]
